FAERS Safety Report 19831650 (Version 1)
Quarter: 2021Q3

REPORT INFORMATION
  Report Type: Spontaneous
  Country: US (occurrence: US)
  Receive Date: 20210915
  Receipt Date: 20210915
  Transmission Date: 20211014
  Serious: Yes (Hospitalization)
  Sender: FDA-Public Use
  Company Number: US-BIOGEN-2021BI01048050

PATIENT
  Sex: Female

DRUGS (1)
  1. TECFIDERA [Suspect]
     Active Substance: DIMETHYL FUMARATE
     Indication: MULTIPLE SCLEROSIS
     Dosage: MAINTENANCE CODE
     Route: 048
     Dates: start: 20130910

REACTIONS (3)
  - Brain neoplasm [Recovered/Resolved]
  - Aphasia [Not Recovered/Not Resolved]
  - Memory impairment [Unknown]
